FAERS Safety Report 10016316 (Version 1)
Quarter: 2014Q1

REPORT INFORMATION
  Report Type: Spontaneous
  Country: US (occurrence: US)
  Receive Date: 20140317
  Receipt Date: 20140317
  Transmission Date: 20141002
  Serious: No
  Sender: FDA-Public Use
  Company Number: US-PFIZER INC-2014076416

PATIENT
  Age: 41 Year
  Sex: Female
  Weight: 63.5 kg

DRUGS (3)
  1. EFFEXOR XR [Suspect]
     Indication: DEPRESSION
     Dosage: UNK
     Dates: start: 200603, end: 200604
  2. XANAX [Concomitant]
     Indication: ANXIETY
     Dosage: UNK [1-2MG], AS NEEDED
  3. PRISTIQ [Concomitant]
     Indication: ANXIETY
     Dosage: UNK

REACTIONS (1)
  - Hypoaesthesia [Unknown]
